FAERS Safety Report 12133936 (Version 1)
Quarter: 2016Q1

REPORT INFORMATION
  Report Type: Spontaneous
  Country: US (occurrence: US)
  Receive Date: 20160301
  Receipt Date: 20160301
  Transmission Date: 20160526
  Serious: No
  Sender: FDA-Public Use
  Company Number: US-INSYS THERAPEUTICS, INC-INS201407-000125

PATIENT
  Sex: Male
  Weight: 90.72 kg

DRUGS (19)
  1. SUBSYS [Suspect]
     Active Substance: FENTANYL
     Indication: TUMOUR PAIN
  2. FLECTOR [Concomitant]
     Active Substance: DICLOFENAC EPOLAMINE
  3. BUTRANS [Concomitant]
     Active Substance: BUPRENORPHINE
  4. VICODIN [Concomitant]
     Active Substance: ACETAMINOPHEN\HYDROCODONE BITARTRATE
     Indication: PAIN
  5. BUTRANS [Concomitant]
     Active Substance: BUPRENORPHINE
  6. FENTANYL TRANSDERMAL SYSTEM [Concomitant]
     Active Substance: FENTANYL
  7. MORPHINE [Concomitant]
     Active Substance: MORPHINE
     Indication: PAIN
  8. PERCOCET [Concomitant]
     Active Substance: ACETAMINOPHEN\OXYCODONE HYDROCHLORIDE
     Indication: PAIN
  9. CELEBREX [Concomitant]
     Active Substance: CELECOXIB
  10. DULOXETINE. [Concomitant]
     Active Substance: DULOXETINE
     Indication: PAIN IN EXTREMITY
  11. NUTROPIN [Concomitant]
     Active Substance: SOMATROPIN
  12. FLEXERIL [Concomitant]
     Active Substance: CYCLOBENZAPRINE HYDROCHLORIDE
  13. DILAUDID [Concomitant]
     Active Substance: HYDROMORPHONE HYDROCHLORIDE
     Indication: PAIN
  14. NUVIGIL [Concomitant]
     Active Substance: ARMODAFINIL
  15. OXYCODONE [Concomitant]
     Active Substance: OXYCODONE
     Indication: PAIN
  16. SUBSYS [Suspect]
     Active Substance: FENTANYL
     Indication: ADIPOSIS DOLOROSA
     Route: 060
     Dates: start: 201209
  17. DULOXETINE. [Concomitant]
     Active Substance: DULOXETINE
     Indication: DEPRESSION
  18. ZOFRAN [Concomitant]
     Active Substance: ONDANSETRON HYDROCHLORIDE
     Indication: NAUSEA
  19. LIDOCAINE GEL [Concomitant]
     Indication: SCRATCH

REACTIONS (6)
  - Pain [Unknown]
  - Scratch [Unknown]
  - Vomiting [Unknown]
  - Accidental device ingestion [Not Recovered/Not Resolved]
  - Product quality issue [Unknown]
  - Discomfort [Unknown]
